FAERS Safety Report 10888440 (Version 2)
Quarter: 2017Q4

REPORT INFORMATION
  Report Type: Spontaneous
  Country: US (occurrence: US)
  Receive Date: 20150305
  Receipt Date: 20171128
  Transmission Date: 20180320
  Serious: Yes (Life-Threatening, Hospitalization)
  Sender: FDA-Public Use
  Company Number: US-SA-2015SA025736

PATIENT
  Age: 61 Year
  Sex: Male

DRUGS (6)
  1. BEVACIZUMAB. [Concomitant]
     Active Substance: BEVACIZUMAB
     Indication: COLON CANCER METASTATIC
  2. LEUCOVORIN CALCIUM. [Concomitant]
     Active Substance: LEUCOVORIN CALCIUM
     Indication: COLON CANCER METASTATIC
  3. FLUOROURACIL. [Concomitant]
     Active Substance: FLUOROURACIL
     Indication: COLON CANCER METASTATIC
     Dosage: INFUSION
  4. OXALIPLATIN. [Suspect]
     Active Substance: OXALIPLATIN
     Indication: COLON CANCER METASTATIC
     Dosage: INFUSION
     Route: 065
  5. OXALIPLATIN. [Suspect]
     Active Substance: OXALIPLATIN
     Indication: COLON CANCER METASTATIC
     Dosage: INFUSION; 40% OF THE OXALIPLATIN INFUSION (APPROXIMATELY 60 MG)
     Route: 065
  6. FLUOROURACIL. [Concomitant]
     Active Substance: FLUOROURACIL
     Indication: COLON CANCER METASTATIC
     Dosage: BOLUS
     Route: 040

REACTIONS (18)
  - Haemoglobin decreased [Recovered/Resolved]
  - Haematuria [Recovered/Resolved]
  - Activated partial thromboplastin time prolonged [Recovered/Resolved]
  - Haemolytic anaemia [Recovered/Resolved]
  - Haemoglobinuria [Recovered/Resolved]
  - Disseminated intravascular coagulation [Recovered/Resolved]
  - Gingival bleeding [Recovered/Resolved]
  - Haptoglobin decreased [Recovered/Resolved]
  - Blood bilirubin increased [Recovered/Resolved]
  - Chills [Recovered/Resolved]
  - Blood bilirubin unconjugated increased [Recovered/Resolved]
  - Blood fibrinogen decreased [Recovered/Resolved]
  - Platelet count decreased [Recovered/Resolved]
  - Pyrexia [Recovered/Resolved]
  - Prothrombin time prolonged [Recovered/Resolved]
  - Fibrin D dimer increased [Recovered/Resolved]
  - Prothrombin time ratio increased [Recovered/Resolved]
  - Blood lactate dehydrogenase increased [Recovered/Resolved]
